FAERS Safety Report 26167592 (Version 1)
Quarter: 2025Q4

REPORT INFORMATION
  Report Type: Spontaneous
  Country: EU (occurrence: EU)
  Receive Date: 20251217
  Receipt Date: 20251217
  Transmission Date: 20260118
  Serious: Yes (Death, Other)
  Sender: MACLEODS
  Company Number: EU-MLMSERVICE-20251204-PI727570-00202-9

PATIENT

DRUGS (10)
  1. LINEZOLID [Suspect]
     Active Substance: LINEZOLID
     Indication: Mycobacterium abscessus infection
     Route: 048
     Dates: start: 202002, end: 202002
  2. AZITHROMYCIN [Concomitant]
     Active Substance: AZITHROMYCIN
     Route: 048
     Dates: start: 201901, end: 201911
  3. AZITHROMYCIN [Concomitant]
     Active Substance: AZITHROMYCIN
     Dosage: THE DOSAGE WAS INCREASED TO 500 MG EVERY 48 HOURS
     Route: 048
     Dates: start: 201912, end: 202006
  4. CLOFAZIMINE [Concomitant]
     Active Substance: CLOFAZIMINE
     Route: 048
     Dates: start: 202002, end: 202109
  5. AMIKACIN [Concomitant]
     Active Substance: AMIKACIN
     Dates: start: 202002, end: 202112
  6. TACROLIMUS [Concomitant]
     Active Substance: TACROLIMUS
     Indication: Immunosuppression
     Route: 065
     Dates: start: 201901, end: 202206
  7. PREDNISONE [Concomitant]
     Active Substance: PREDNISONE
     Indication: Immunosuppression
     Route: 065
     Dates: start: 201901, end: 202206
  8. SIROLIMUS [Concomitant]
     Active Substance: SIROLIMUS
     Indication: Immunosuppression
     Route: 065
     Dates: start: 201904, end: 202204
  9. CIPROFLOXACIN [Concomitant]
     Active Substance: CIPROFLOXACIN
     Indication: Product used for unknown indication
     Route: 048
     Dates: start: 202004, end: 202107
  10. TEDIZOLID [Concomitant]
     Active Substance: TEDIZOLID
     Indication: Product used for unknown indication
     Route: 048
     Dates: start: 202006, end: 202102

REACTIONS (4)
  - Complications of transplanted lung [Fatal]
  - Acute kidney injury [Unknown]
  - Diarrhoea [Unknown]
  - Gastrointestinal disorder [Unknown]

NARRATIVE: CASE EVENT DATE: 20200201
